FAERS Safety Report 9299999 (Version 3)
Quarter: 2013Q4

REPORT INFORMATION
  Report Type: Spontaneous
  Country: US (occurrence: US)
  Receive Date: 20130521
  Receipt Date: 20131118
  Transmission Date: 20140711
  Serious: Yes (Hospitalization)
  Sender: FDA-Public Use
  Company Number: US-BAYER-2013-060802

PATIENT
  Age: 48 Year
  Sex: Female
  Weight: 59.86 kg

DRUGS (10)
  1. YAZ [Suspect]
     Dosage: UNK
     Dates: start: 200908, end: 201107
  2. GIANVI [Suspect]
     Dosage: UNK
     Dates: start: 200908, end: 201107
  3. YASMIN [Suspect]
  4. OCELLA [Suspect]
  5. BENICAR [Concomitant]
  6. HYDROCHLOROTHIAZIDE [Concomitant]
  7. AMLODIPINE [Concomitant]
  8. NORVASC [Concomitant]
  9. SYNTHROID [Concomitant]
  10. MICROGESTIN [Concomitant]

REACTIONS (8)
  - Cerebrovascular accident [None]
  - Cerebral artery thrombosis [Recovered/Resolved]
  - Cerebral infarction [None]
  - Injury [None]
  - Pain [None]
  - General physical health deterioration [None]
  - Emotional distress [None]
  - Anxiety [None]
